FAERS Safety Report 4491938-8 (Version None)
Quarter: 2004Q4

REPORT INFORMATION
  Report Type: 
  Country: None (occurrence: None)
  Receive Date: 20041029
  Receipt Date: 20041029
  Transmission Date: 20050328
  Serious: Yes (Other)
  Sender: FDA-Public Use
  Company Number: None

PATIENT
  Age: 30 Year
  Sex: Female
  Weight: 72.5755 kg

DRUGS (3)
  1. ZOLOFT [Suspect]
     Indication: ANXIETY
     Dosage: 50 MG   ONCE A DAY   ORAL
     Route: 048
     Dates: start: 20040101, end: 20040719
  2. ZOLOFT [Suspect]
     Indication: DEPRESSION
     Dosage: 50 MG   ONCE A DAY   ORAL
     Route: 048
     Dates: start: 20040101, end: 20040719
  3. ZOLOFT [Suspect]
     Dosage: 25 MG   ONCE A DAY   ORAL
     Route: 048
     Dates: start: 20040715, end: 20041025

REACTIONS (5)
  - DYSGEUSIA [None]
  - INFLUENZA [None]
  - NASOPHARYNGITIS [None]
  - PARAESTHESIA [None]
  - VISUAL DISTURBANCE [None]
